FAERS Safety Report 14033352 (Version 1)
Quarter: 2017Q4

REPORT INFORMATION
  Report Type: Spontaneous
  Country: US (occurrence: US)
  Receive Date: 20171003
  Receipt Date: 20171003
  Transmission Date: 20180321
  Serious: No
  Sender: FDA-Public Use
  Company Number: US-DRREDDYS-USA/USA/17/0090558

PATIENT
  Age: 50 Year
  Sex: Female
  Weight: 48.08 kg

DRUGS (3)
  1. AUGMENTIN [Suspect]
     Active Substance: AMOXICILLIN\CLAVULANATE POTASSIUM
     Indication: SINUSITIS
     Route: 065
  2. GAMMAGARD [Concomitant]
     Active Substance: HUMAN IMMUNOGLOBULIN G
     Indication: IMMUNODEFICIENCY COMMON VARIABLE
     Dosage: 10 PERCENT/30G EVERY 21 DAYS
     Route: 065
  3. INVANZ [Suspect]
     Active Substance: ERTAPENEM SODIUM
     Indication: SINUSITIS
     Route: 042
     Dates: start: 20170413

REACTIONS (2)
  - Drug ineffective [Unknown]
  - Product quality issue [Unknown]
